FAERS Safety Report 4979099-X (Version None)
Quarter: 2006Q2

REPORT INFORMATION
  Report Type: 
  Country: None (occurrence: None)
  Receive Date: 20060418
  Receipt Date: 20060411
  Transmission Date: 20061013
  Serious: Yes (Hospitalization)
  Sender: FDA-Public Use
  Company Number: SP-2006-002851

PATIENT
  Age: 45 Year
  Sex: Male
  Weight: 94 kg

DRUGS (1)
  1. OLMESARTAN [Suspect]
     Indication: HYPERTENSION
     Dosage: 20 MG QD PO
     Route: 048
     Dates: start: 20051207

REACTIONS (1)
  - NEPHROLITHIASIS [None]
